FAERS Safety Report 10734001 (Version 1)
Quarter: 2015Q1

REPORT INFORMATION
  Report Type: Spontaneous
  Country: US (occurrence: US)
  Receive Date: 20150123
  Receipt Date: 20150123
  Transmission Date: 20150721
  Serious: No
  Sender: FDA-Public Use
  Company Number: US-GLAXOSMITHKLINE-US2014GSK048036

PATIENT
  Sex: Female

DRUGS (1)
  1. TANZEUM [Suspect]
     Active Substance: ALBIGLUTIDE
     Indication: TYPE 2 DIABETES MELLITUS
     Dosage: 30 MG, WE
     Route: 042
     Dates: start: 201411

REACTIONS (4)
  - Abdominal pain upper [Unknown]
  - Local swelling [Unknown]
  - Musculoskeletal chest pain [Unknown]
  - Dysphagia [Unknown]

NARRATIVE: CASE EVENT DATE: 2014
